FAERS Safety Report 5576301-0 (Version None)
Quarter: 2007Q4

REPORT INFORMATION
  Report Type: 
  Country: None (occurrence: None)
  Receive Date: 20071228
  Receipt Date: 20071218
  Transmission Date: 20080405
  Serious: Yes (Hospitalization)
  Sender: FDA-Public Use
  Company Number: US-KINGPHARMUSA00001-K200701632

PATIENT

DRUGS (5)
  1. AVINZA [Suspect]
     Indication: PAIN
     Dosage: 60 MG, BID
     Route: 048
  2. AVINZA [Suspect]
     Dosage: 60 MG, TID
     Route: 048
  3. OMEPRAZOLE [Concomitant]
     Indication: GASTRIC DISORDER
     Dosage: 20 MG, QD
     Route: 048
     Dates: start: 20061001
  4. SOTALOL HYDROCHLORIDE [Concomitant]
     Dosage: 120 MG, QD
  5. FENTANYL [Concomitant]
     Dosage: 125 MG, QD
     Route: 062

REACTIONS (4)
  - COUGH DECREASED [None]
  - GASTRIC PH DECREASED [None]
  - IMMUNE SYSTEM DISORDER [None]
  - PNEUMONIA STAPHYLOCOCCAL [None]
